FAERS Safety Report 8317704 (Version 3)
Quarter: 2012Q4

REPORT INFORMATION
  Report Type: Report from Study
  Country: JP (occurrence: JP)
  Receive Date: 20120102
  Receipt Date: 20121218
  Transmission Date: 20130627
  Serious: Yes (Life-Threatening)
  Sender: FDA-Public Use
  Company Number: PHHY2008JP01207

PATIENT
  Age: 63 Year
  Sex: Male

DRUGS (4)
  1. CGP 57148B [Suspect]
     Indication: GASTROINTESTINAL STROMAL TUMOUR
     Dosage: 400 mg, daily
     Route: 048
     Dates: start: 20051001, end: 20060127
  2. CGP 57148B [Suspect]
     Dosage: 400 mg, daily
     Route: 048
     Dates: start: 20060207
  3. CGP 57148B [Suspect]
     Dosage: 400 mg, daily
     Route: 048
     Dates: start: 20071121, end: 20090129
  4. CGP 57148B [Suspect]
     Dosage: 400 mg, daily
     Route: 048
     Dates: start: 20090209

REACTIONS (2)
  - Renal cell carcinoma [Recovering/Resolving]
  - Second primary malignancy [Recovering/Resolving]
